FAERS Safety Report 11197630 (Version 1)
Quarter: 2015Q2

REPORT INFORMATION
  Report Type: Spontaneous
  Country: SE (occurrence: SE)
  Receive Date: 20150617
  Receipt Date: 20150617
  Transmission Date: 20150821
  Serious: Yes (Other)
  Sender: FDA-Public Use
  Company Number: SE-GE HEALTHCARE MEDICAL DIAGNOSTICS-OMPQ-E2B_00000128

PATIENT
  Age: 82 Year
  Sex: Female

DRUGS (8)
  1. PRIMPERAN [Suspect]
     Active Substance: METOCLOPRAMIDE HYDROCHLORIDE
     Indication: VOMITING
     Dates: start: 20150516, end: 20150516
  2. METOPROLOL [Concomitant]
     Active Substance: METOPROLOL
  3. OMNIPAQUE [Suspect]
     Active Substance: IOHEXOL
     Indication: DIAGNOSTIC PROCEDURE
  4. LEVAXIN [Concomitant]
     Active Substance: LEVOTHYROXINE SODIUM
  5. ALVEDON [Concomitant]
     Active Substance: ACETAMINOPHEN
  6. ACTILYSE [Suspect]
     Active Substance: ALTEPLASE
     Indication: MYOCARDIAL INFARCTION
     Route: 042
     Dates: start: 20150516, end: 20150516
  7. OMNIPAQUE [Suspect]
     Active Substance: IOHEXOL
     Indication: PRODUCT USED FOR UNKNOWN INDICATION
     Dosage: DOSE NOT REPORTED
     Dates: start: 20150516, end: 20150516
  8. OXASCAND [Concomitant]
     Active Substance: OXAZEPAM

REACTIONS (1)
  - Allergic oedema [Recovered/Resolved]

NARRATIVE: CASE EVENT DATE: 20150516
